FAERS Safety Report 5093263-3 (Version None)
Quarter: 2006Q3

REPORT INFORMATION
  Report Type: 
  Country: None (occurrence: None)
  Receive Date: 20060829
  Receipt Date: 20060829
  Transmission Date: 20061208
  Serious: Yes (Hospitalization)
  Sender: FDA-Public Use
  Company Number: None

PATIENT
  Sex: Male
  Weight: 81.4 kg

DRUGS (7)
  1. GLEEVEC [Suspect]
     Indication: ASTROCYTOMA
     Dosage: 400 MG QD PO
     Route: 048
     Dates: start: 20060731, end: 20060811
  2. CONCERTA [Concomitant]
  3. LEXAPRO [Concomitant]
  4. AREDIA [Concomitant]
  5. AMBIEN [Concomitant]
  6. ZOCOR [Concomitant]
  7. HYDREA [Concomitant]

REACTIONS (3)
  - CHEST DISCOMFORT [None]
  - DYSPNOEA [None]
  - HYPERHIDROSIS [None]
